FAERS Safety Report 10374993 (Version 3)
Quarter: 2014Q4

REPORT INFORMATION
  Report Type: Report from Study
  Country: US (occurrence: US)
  Receive Date: 20140811
  Receipt Date: 20141216
  Transmission Date: 20150528
  Serious: No
  Sender: FDA-Public Use
  Company Number: US-PFIZER INC-2014160216

PATIENT
  Age: 39 Year
  Sex: Female
  Weight: 61.22 kg

DRUGS (9)
  1. PRENATAL VITAMINS [Concomitant]
     Active Substance: VITAMINS
     Dosage: DOSE:1, FRQ:1, UNIT:DAY
     Route: 048
     Dates: start: 20140109, end: 20141005
  2. NORCO [Concomitant]
     Active Substance: ACETAMINOPHEN\HYDROCODONE BITARTRATE
     Indication: PAIN
     Dosage: DOSE:3, UNIT:PILL, FRQ:1, UNIT:DAY
     Route: 048
     Dates: start: 20140109, end: 20141005
  3. CLARITIN [Concomitant]
     Active Substance: LORATADINE
     Indication: HYPERSENSITIVITY
     Dosage: 10 MG, UNK
     Route: 048
     Dates: start: 20140109, end: 20141005
  4. ALBUTEROL. [Concomitant]
     Active Substance: ALBUTEROL
     Indication: ASTHMA
     Dosage: 1.5 PUFF, PRN, ROUTE: INHALED
     Route: 055
     Dates: start: 20140109, end: 20141005
  5. FENTANYL TRANSDERMAL SYSTEM [Concomitant]
     Active Substance: FENTANYL
     Indication: PAIN
     Dosage: DOSE:75, UNIT:MCG, FRQ:3.5, UNIT:WK
     Route: 023
     Dates: start: 20140109, end: 20140601
  6. MMR (LIVE ATTENUATED) VARICELLA LIVE [Concomitant]
     Dosage: 1 INJECTED SHOT 1 WK PRIOR TO LMP
     Dates: start: 20140103, end: 20140103
  7. ALBUTEROL. [Concomitant]
     Active Substance: ALBUTEROL
     Indication: HYPERSENSITIVITY
  8. XELJANZ [Suspect]
     Active Substance: TOFACITINIB CITRATE
     Indication: RHEUMATOID ARTHRITIS
     Dosage: 2 DF (PILL), 1X/DAY
     Route: 048
     Dates: start: 20121001, end: 20140125
  9. PERCOCET 5/325 [Concomitant]
     Indication: PAIN
     Dosage: 3, PILL , FRQ: 1, UNIT: DAY
     Route: 048
     Dates: start: 20140109, end: 20141005

REACTIONS (1)
  - Migraine [Unknown]

NARRATIVE: CASE EVENT DATE: 20140601
